FAERS Safety Report 7114407-5 (Version None)
Quarter: 2010Q4

REPORT INFORMATION
  Report Type: 
  Country: None (occurrence: None)
  Receive Date: 20101119
  Receipt Date: 20101115
  Transmission Date: 20110411
  Serious: Yes (Other)
  Sender: FDA-Public Use
  Company Number: TR-PFIZER INC-2010148232

PATIENT
  Sex: Male

DRUGS (1)
  1. PHENYTOIN SODIUM [Suspect]

REACTIONS (5)
  - DRUG INTERACTION [None]
  - GLUCOCORTICOIDS DECREASED [None]
  - HYPOGLYCAEMIA [None]
  - HYPONATRAEMIA [None]
  - VOMITING [None]
